FAERS Safety Report 17578377 (Version 1)
Quarter: 2020Q1

REPORT INFORMATION
  Report Type: Spontaneous
  Country: US (occurrence: US)
  Receive Date: 20200324
  Receipt Date: 20200324
  Transmission Date: 20200409
  Serious: No
  Sender: FDA-Public Use
  Company Number: US-009507513-2003USA007328

PATIENT
  Age: 3 Month
  Sex: Female
  Weight: 6 kg

DRUGS (1)
  1. KEYTRUDA [Suspect]
     Active Substance: PEMBROLIZUMAB
     Indication: BLAST CELLS PRESENT
     Dosage: 2 MILLIGRAM/KILOGRAM, ON DAY 6

REACTIONS (1)
  - Product use in unapproved indication [Unknown]
